FAERS Safety Report 6759586-4 (Version None)
Quarter: 2010Q2

REPORT INFORMATION
  Report Type: 
  Country: None (occurrence: None)
  Receive Date: 20100608
  Receipt Date: 20100525
  Transmission Date: 20101027
  Serious: Yes (Other)
  Sender: FDA-Public Use
  Company Number: IT-MYLANLABS-2010S1009197

PATIENT
  Age: 57 Year
  Sex: Male

DRUGS (2)
  1. METHOTREXATE [Suspect]
     Indication: PSORIASIS
     Dosage: 7.5 MG/WEEK
     Dates: start: 20081001
  2. FOLINIC ACID [Concomitant]
     Indication: PSORIASIS
     Dosage: 5 MG/WEEK
     Dates: start: 20081001

REACTIONS (2)
  - PLEURAL EFFUSION [None]
  - PLEUROPERICARDITIS [None]
